FAERS Safety Report 5832750-4 (Version None)
Quarter: 2008Q3

REPORT INFORMATION
  Report Type: 
  Country: None (occurrence: None)
  Receive Date: 20080804
  Receipt Date: 20080729
  Transmission Date: 20090109
  Serious: Yes (Other)
  Sender: FDA-Public Use
  Company Number: PHHY2008DE16354

PATIENT
  Age: 66 Year
  Sex: Female

DRUGS (3)
  1. RASILEZ [Suspect]
     Dosage: 150 MG/DAY
  2. RASILEZ [Suspect]
     Dosage: 300 MG/DAY
  3. LEVOTHYROXINE SODIUM [Concomitant]
     Indication: HYPOTHYROIDISM

REACTIONS (2)
  - ARTHRALGIA [None]
  - OSTEOARTHRITIS [None]
